FAERS Safety Report 6387266-6 (Version None)
Quarter: 2009Q3

REPORT INFORMATION
  Report Type: 
  Country: None (occurrence: None)
  Receive Date: 20090928
  Receipt Date: 20090914
  Transmission Date: 20100115
  Serious: Yes (Death)
  Sender: FDA-Public Use
  Company Number: AE-2009-209

PATIENT
  Age: 43 Year
  Sex: Female

DRUGS (11)
  1. FUROSEMIDE [Suspect]
     Dosage: ORAL
     Route: 048
  2. GABAPENTIN [Suspect]
     Dosage: ORAL
     Route: 048
  3. QUETIAPINE [Concomitant]
  4. BETA BLOCKER [Concomitant]
  5. BUPROPION HCL [Concomitant]
  6. ALBUTEROL [Concomitant]
  7. FLUOXETINE [Concomitant]
  8. SPIRONOLACTONE [Concomitant]
  9. THYROID PREPARATION [Concomitant]
  10. NAPROXEN [Concomitant]
  11. COCAINE [Concomitant]

REACTIONS (1)
  - COMPLETED SUICIDE [None]
